FAERS Safety Report 6529035-X (Version None)
Quarter: 2009Q4

REPORT INFORMATION
  Report Type: 
  Country: None (occurrence: None)
  Receive Date: 20091229
  Receipt Date: 20091214
  Transmission Date: 20100525
  Serious: Yes (Hospitalization, Other)
  Sender: FDA-Public Use
  Company Number: 2009AP005081

PATIENT
  Sex: Female

DRUGS (2)
  1. LISINOPRIL [Suspect]
     Dosage: TAB;PO
     Route: 048
     Dates: start: 20070105
  2. FENOFIBRATE [Suspect]
     Dosage: CAP;PO
     Route: 048
     Dates: start: 20070105

REACTIONS (3)
  - BLINDNESS [None]
  - STEM CELL TRANSPLANT [None]
  - STEVENS-JOHNSON SYNDROME [None]
